FAERS Safety Report 8050911-3 (Version None)
Quarter: 2012Q1

REPORT INFORMATION
  Report Type: 
  Country: None (occurrence: None)
  Receive Date: 20120117
  Receipt Date: 20120109
  Transmission Date: 20120608
  Serious: Yes (Hospitalization, Other)
  Sender: FDA-Public Use
  Company Number: PHHY2009IE05594

PATIENT
  Sex: Male

DRUGS (6)
  1. HALOPERIDOL [Concomitant]
     Indication: SCHIZOPHRENIA
     Dosage: 2.5 MG, BID
     Route: 048
     Dates: start: 20040901
  2. PROCYCLIDINE HYDROCHLORIDE 2MG TAB [Concomitant]
     Indication: PROPHYLAXIS
     Dosage: 5 MG DAILY
     Route: 048
     Dates: start: 20040901
  3. BENZYLPIPERAZINE [Suspect]
     Dosage: 3-4 TABLETS
     Route: 048
     Dates: start: 20090101, end: 20090201
  4. CLOZARIL [Suspect]
     Dosage: UNK
  5. CLOZARIL [Suspect]
     Indication: SCHIZOPHRENIA
     Dosage: 900 MG, QD
     Route: 048
     Dates: start: 20050301
  6. CLOZARIL [Suspect]
     Dosage: UNK
     Route: 048

REACTIONS (20)
  - INCOHERENT [None]
  - DELIRIUM [None]
  - DRUG ABUSE [None]
  - DYSARTHRIA [None]
  - SINUS TACHYCARDIA [None]
  - HALLUCINATION, AUDITORY [None]
  - DISTURBANCE IN ATTENTION [None]
  - ARACHNOID CYST [None]
  - MYOCLONUS [None]
  - BRAIN MASS [None]
  - DISORIENTATION [None]
  - BRAIN OEDEMA [None]
  - ABNORMAL BEHAVIOUR [None]
  - MENINGIOMA [None]
  - PERSECUTORY DELUSION [None]
  - AGITATION [None]
  - IRRITABILITY [None]
  - SPEECH DISORDER [None]
  - CONFUSIONAL STATE [None]
  - ANTIPSYCHOTIC DRUG LEVEL BELOW THERAPEUTIC [None]
